FAERS Safety Report 8475838-4 (Version None)
Quarter: 2012Q2

REPORT INFORMATION
  Report Type: 
  Country: None (occurrence: None)
  Receive Date: 20120621
  Receipt Date: 20120613
  Transmission Date: 20120825
  Serious: Yes (Hospitalization)
  Sender: FDA-Public Use
  Company Number: 2010SP060308

PATIENT
  Age: 29 Year
  Sex: Female

DRUGS (3)
  1. KELTICAN [Concomitant]
  2. NUVARING [Suspect]
     Indication: CONTRACEPTION
  3. IBPROFEN [Concomitant]

REACTIONS (9)
  - ABDOMINAL PAIN UPPER [None]
  - HEADACHE [None]
  - PSYCHOSOMATIC DISEASE [None]
  - MENOMETRORRHAGIA [None]
  - DIARRHOEA [None]
  - MUSCLE DISORDER [None]
  - INTERVERTEBRAL DISC PROTRUSION [None]
  - MENTAL DISORDER [None]
  - ECZEMA [None]
